FAERS Safety Report 5795662-0 (Version None)
Quarter: 2008Q2

REPORT INFORMATION
  Report Type: 
  Country: None (occurrence: None)
  Receive Date: 20080630
  Receipt Date: 20080619
  Transmission Date: 20081010
  Serious: Yes (Other)
  Sender: FDA-Public Use
  Company Number: US-PFIZER INC-2008052473

PATIENT
  Sex: Female
  Weight: 53.1 kg

DRUGS (9)
  1. LYRICA [Suspect]
     Indication: FIBROMYALGIA
     Route: 048
  2. SOMA [Concomitant]
  3. PERCOCET [Concomitant]
  4. XANAX [Concomitant]
  5. ALL OTHER THERAPEUTIC PRODUCTS [Concomitant]
  6. EFFEXOR [Concomitant]
  7. CHANTIX [Concomitant]
  8. NEXIUM [Concomitant]
  9. ZOCOR [Concomitant]

REACTIONS (2)
  - CARDIAC NEOPLASM UNSPECIFIED [None]
  - SPEECH DISORDER [None]
